FAERS Safety Report 14480582 (Version 9)
Quarter: 2018Q4

REPORT INFORMATION
  Report Type: Spontaneous
  Country: GB (occurrence: GB)
  Receive Date: 20180202
  Receipt Date: 20181022
  Transmission Date: 20190204
  Serious: Yes (Other)
  Sender: FDA-Public Use
  Company Number: GB-MYLANLABS-2018M1006060

PATIENT
  Age: 71 Year
  Sex: Male

DRUGS (11)
  1. SIMVASTATIN. [Suspect]
     Active Substance: SIMVASTATIN
     Dosage: UNK
     Route: 048
  2. ACETYLSALICYLIC ACID [Suspect]
     Active Substance: ASPIRIN
     Indication: PROPHYLAXIS
     Dosage: UNK
     Route: 065
  3. SIMVASTATIN. [Suspect]
     Active Substance: SIMVASTATIN
     Indication: TYPE 2 DIABETES MELLITUS
     Dosage: UNK
     Route: 048
  4. RAMIPRIL. [Suspect]
     Active Substance: RAMIPRIL
     Indication: TYPE 2 DIABETES MELLITUS
     Dosage: UNK
     Route: 065
  5. SIMVASTATIN. [Suspect]
     Active Substance: SIMVASTATIN
     Indication: HYPERCHOLESTEROLAEMIA
     Dosage: UNK
     Route: 048
  6. ACETYLSALICYLIC ACID [Suspect]
     Active Substance: ASPIRIN
     Indication: TYPE 2 DIABETES MELLITUS
  7. ACETYLSALICYLIC ACID [Suspect]
     Active Substance: ASPIRIN
     Indication: HYPERCHOLESTEROLAEMIA
  8. ASPIRIN                            /00002701/ [Suspect]
     Active Substance: ASPIRIN
     Indication: PROPHYLAXIS
     Dosage: UNK
     Route: 065
  9. METFORMIN [Suspect]
     Active Substance: METFORMIN HYDROCHLORIDE
     Indication: DIABETES MELLITUS
     Dosage: UNK
     Route: 048
  10. RAMIPRIL. [Suspect]
     Active Substance: RAMIPRIL
     Indication: PROPHYLAXIS
     Dosage: UNK
     Route: 065
  11. ASPIRIN                            /00002701/ [Suspect]
     Active Substance: ASPIRIN
     Indication: HYPERCHOLESTEROLAEMIA
     Dosage: UNK, ASPIRIN
     Route: 065

REACTIONS (6)
  - Skin discolouration [Unknown]
  - Naevus flammeus [Unknown]
  - Actinic elastosis [Unknown]
  - Rash erythematous [Unknown]
  - Skin lesion [Unknown]
  - Rash macular [Unknown]
